FAERS Safety Report 20673097 (Version 2)
Quarter: 2022Q2

REPORT INFORMATION
  Report Type: Spontaneous
  Country: US (occurrence: US)
  Receive Date: 20220405
  Receipt Date: 20220620
  Transmission Date: 20220721
  Serious: No
  Sender: FDA-Public Use
  Company Number: US-BAUSCH-BL-2022-008205

PATIENT
  Age: 73 Year
  Sex: Female
  Weight: 56.750 kg

DRUGS (3)
  1. JUBLIA [Suspect]
     Active Substance: EFINACONAZOLE
     Indication: Onychomycosis
     Dosage: TO ALL 10 OF HER OF TOENAILS
     Route: 061
  2. JUBLIA [Suspect]
     Active Substance: EFINACONAZOLE
     Dosage: TO ALL 10 OF HER OF TOENAILS
     Route: 061
  3. OXICONAZOLE [Concomitant]
     Active Substance: OXICONAZOLE
     Indication: Product used for unknown indication

REACTIONS (6)
  - Application site injury [Unknown]
  - Application site erythema [Unknown]
  - Application site vesicles [Unknown]
  - Application site pain [Unknown]
  - Product delivery mechanism issue [Unknown]
  - Treatment noncompliance [Unknown]
